FAERS Safety Report 20660085 (Version 1)
Quarter: 2022Q1

REPORT INFORMATION
  Report Type: Spontaneous
  Country: US (occurrence: None)
  Receive Date: 20220331
  Receipt Date: 20220331
  Transmission Date: 20220423
  Serious: Yes (Death)
  Sender: FDA-Public Use
  Company Number: None

PATIENT
  Age: 73 Year
  Sex: Male

DRUGS (11)
  1. LOKELMA [Suspect]
     Active Substance: SODIUM ZIRCONIUM CYCLOSILICATE
     Indication: Hyperkalaemia
     Dosage: FREQUENCY : DAILY;?
     Route: 048
     Dates: start: 20220104, end: 20220214
  2. ALBUTEROL [Concomitant]
     Active Substance: ALBUTEROL
  3. AMIODARONE [Concomitant]
     Active Substance: AMIODARONE
  4. Coreg 3.125mg [Concomitant]
  5. ECOTRIN [Concomitant]
     Active Substance: ASPIRIN
  6. ELIQUIS [Concomitant]
     Active Substance: APIXABAN
  7. Ferrous Gluconate 324mg [Concomitant]
  8. Formoterol 20mcg Inhaler [Concomitant]
  9. Lipitor 80mg [Concomitant]
  10. PANTOPRAZOLE SODIUM [Concomitant]
     Active Substance: PANTOPRAZOLE SODIUM
  11. PREDNISONE [Concomitant]
     Active Substance: PREDNISONE

REACTIONS (1)
  - Death [None]

NARRATIVE: CASE EVENT DATE: 20220214
